FAERS Safety Report 20850807 (Version 1)
Quarter: 2022Q2

REPORT INFORMATION
  Report Type: Spontaneous
  Country: US (occurrence: None)
  Receive Date: 20220518
  Receipt Date: 20220518
  Transmission Date: 20220721
  Serious: Yes (unspecified)
  Sender: FDA-Public Use
  Company Number: None

PATIENT
  Age: 66 Year
  Sex: Female

DRUGS (1)
  1. EVUSHELD [Suspect]
     Active Substance: CILGAVIMAB\TIXAGEVIMAB
     Dosage: OTHER FREQUENCY : ONCE;?
     Route: 030
     Dates: start: 20220412, end: 20220412

REACTIONS (5)
  - Dizziness [None]
  - Nausea [None]
  - Hyperhidrosis [None]
  - Blood pressure increased [None]
  - Body temperature increased [None]

NARRATIVE: CASE EVENT DATE: 20220412
